FAERS Safety Report 21585846 (Version 1)
Quarter: 2022Q4

REPORT INFORMATION
  Report Type: Spontaneous
  Country: US (occurrence: US)
  Receive Date: 20221111
  Receipt Date: 20221111
  Transmission Date: 20230112
  Serious: Yes (Hospitalization, Other)
  Sender: FDA-Public Use
  Company Number: US-ALLERGAN-2235915US

PATIENT
  Sex: Female
  Weight: 60.78 kg

DRUGS (1)
  1. RESTASIS [Suspect]
     Active Substance: CYCLOSPORINE
     Indication: Dry eye
     Dosage: 2 GTT, BID
     Route: 047
     Dates: start: 1998

REACTIONS (8)
  - Arthritis [Unknown]
  - Basal cell carcinoma [Recovered/Resolved]
  - Surgery [Unknown]
  - Dry eye [Not Recovered/Not Resolved]
  - Multiple use of single-use product [Unknown]
  - Eye irritation [Recovered/Resolved]
  - Drug ineffective [Unknown]
  - Drug tolerance [Unknown]

NARRATIVE: CASE EVENT DATE: 20180101
